FAERS Safety Report 9364623 (Version 1)
Quarter: 2013Q2

REPORT INFORMATION
  Report Type: Spontaneous
  Country: DE (occurrence: DE)
  Receive Date: 20130624
  Receipt Date: 20130624
  Transmission Date: 20140414
  Serious: Yes (Other)
  Sender: FDA-Public Use
  Company Number: DE-MYLANLABS-2013S1013001

PATIENT
  Age: 17 Year
  Sex: Male
  Weight: 127 kg

DRUGS (2)
  1. METFORMIN [Suspect]
     Route: 065
  2. METHYLPHENIDATE [Suspect]
     Route: 065

REACTIONS (2)
  - Gastrointestinal disorder [Unknown]
  - Grand mal convulsion [Unknown]
